FAERS Safety Report 9984579 (Version 2)
Quarter: 2014Q1

REPORT INFORMATION
  Report Type: Spontaneous
  Country: US (occurrence: US)
  Receive Date: 20140307
  Receipt Date: 20140310
  Transmission Date: 20141002
  Serious: No
  Sender: FDA-Public Use
  Company Number: US-BAYER-2014-034445

PATIENT
  Age: 67 Year
  Sex: Female
  Weight: 68.03 kg

DRUGS (3)
  1. ESTRADIOL HEMIHYDRATE [Suspect]
     Dosage: 0.1 MG, OW
     Route: 062
     Dates: start: 20131002
  2. LEVOTHYROXINE [Concomitant]
     Indication: BLOOD THYROID STIMULATING HORMONE DECREASED
     Dosage: 112 ?G, QD
     Route: 048
     Dates: start: 1972
  3. OMEPRAZOLE [Concomitant]
     Indication: DYSPEPSIA
     Dosage: 40 MG, QD
     Route: 048

REACTIONS (3)
  - Hot flush [Not Recovered/Not Resolved]
  - Irritability [Not Recovered/Not Resolved]
  - Drug ineffective [None]
